FAERS Safety Report 4618205-3 (Version None)
Quarter: 2005Q1

REPORT INFORMATION
  Report Type: 
  Country: None (occurrence: None)
  Receive Date: 20050323
  Receipt Date: 20050303
  Transmission Date: 20050727
  Serious: Yes (Hospitalization, Other)
  Sender: FDA-Public Use
  Company Number: US_0503113983

PATIENT
  Age: 58 Year
  Sex: Female
  Weight: 82 kg

DRUGS (4)
  1. HUMULIN N [Suspect]
  2. HUMALOG [Suspect]
     Indication: DIABETES MELLITUS
     Dates: start: 20031001
  3. VITAMIN E [Concomitant]
  4. ASPIRIN [Concomitant]

REACTIONS (6)
  - CORONARY ARTERY OCCLUSION [None]
  - DEVICE FAILURE [None]
  - DYSPNOEA [None]
  - INJECTION SITE HAEMORRHAGE [None]
  - MEDICATION ERROR [None]
  - PHARMACEUTICAL PRODUCT COMPLAINT [None]
